FAERS Safety Report 8523060-5 (Version None)
Quarter: 2012Q3

REPORT INFORMATION
  Report Type: 
  Country: None (occurrence: None)
  Receive Date: 20120720
  Receipt Date: 20120717
  Transmission Date: 20120928
  Serious: Yes (Hospitalization)
  Sender: FDA-Public Use
  Company Number: US-ROCHE-1089087

PATIENT
  Sex: Female

DRUGS (4)
  1. BONIVA [Suspect]
     Dates: start: 20080820
  2. BONIVA [Suspect]
     Dates: start: 20100504
  3. BONIVA [Suspect]
     Indication: OSTEOPOROSIS
     Route: 048
  4. BONIVA [Suspect]
     Dates: start: 20080910

REACTIONS (1)
  - FEMUR FRACTURE [None]
